FAERS Safety Report 9674774 (Version 4)
Quarter: 2020Q2

REPORT INFORMATION
  Report Type: Spontaneous
  Country: US (occurrence: US)
  Receive Date: 20131107
  Receipt Date: 20200601
  Transmission Date: 20200714
  Serious: No
  Sender: FDA-Public Use
  Company Number: US-009507513-1311USA001762

PATIENT
  Sex: Female

DRUGS (2)
  1. ASMANEX [Suspect]
     Active Substance: MOMETASONE FUROATE
     Dosage: UNK
  2. ASMANEX [Suspect]
     Active Substance: MOMETASONE FUROATE
     Dosage: ONE PUFF ONCE A DAY
     Route: 055
     Dates: start: 2012

REACTIONS (8)
  - Product quality issue [Unknown]
  - Incorrect dose administered [Unknown]
  - Product quality issue [Unknown]
  - Poor quality device used [Unknown]
  - Poor quality device used [Unknown]
  - No adverse event [Unknown]
  - Incorrect dose administered [Unknown]
  - Product dose omission [Unknown]

NARRATIVE: CASE EVENT DATE: 202004
